FAERS Safety Report 12879235 (Version 1)
Quarter: 2016Q4

REPORT INFORMATION
  Report Type: Spontaneous
  Country: US (occurrence: US)
  Receive Date: 20161025
  Receipt Date: 20161025
  Transmission Date: 20170207
  Serious: No
  Sender: FDA-Public Use
  Company Number: US-SUN PHARMACEUTICAL INDUSTRIES LTD-2016SUN00357

PATIENT
  Age: 75 Year
  Sex: Female

DRUGS (1)
  1. TECHNETIUM TC-99M MEDRONATE KIT [Suspect]
     Active Substance: TECHNETIUM TC-99M MEDRONATE
     Indication: DEVICE LOOSENING
     Dosage: 26.1 MCI, OD
     Route: 042
     Dates: start: 20160525, end: 20160525

REACTIONS (3)
  - Myalgia [Recovering/Resolving]
  - Pain in extremity [Recovering/Resolving]
  - Injection site extravasation [Recovering/Resolving]

NARRATIVE: CASE EVENT DATE: 20160525
